FAERS Safety Report 16873570 (Version 1)
Quarter: 2019Q4

REPORT INFORMATION
  Report Type: Spontaneous
  Country: US (occurrence: US)
  Receive Date: 20191001
  Receipt Date: 20191001
  Transmission Date: 20200122
  Serious: Yes (Other)
  Sender: FDA-Public Use
  Company Number: US-BAYER-2019-173569

PATIENT
  Sex: Male

DRUGS (1)
  1. NEXAVAR [Suspect]
     Active Substance: SORAFENIB
     Indication: HEPATOCELLULAR CARCINOMA
     Dosage: 400 MG, BID
     Dates: start: 20190416

REACTIONS (4)
  - Asthenia [Recovered/Resolved]
  - Rash [Not Recovered/Not Resolved]
  - Disorientation [Recovered/Resolved]
  - Diarrhoea [Not Recovered/Not Resolved]
